FAERS Safety Report 9112427 (Version 1)
Quarter: 2013Q1

REPORT INFORMATION
  Report Type: Spontaneous
  Country: US (occurrence: US)
  Receive Date: 20130219
  Receipt Date: 20130219
  Transmission Date: 20140127
  Serious: No
  Sender: FDA-Public Use
  Company Number: US-BRISTOL-MYERS SQUIBB COMPANY-16418774

PATIENT
  Sex: Female

DRUGS (4)
  1. ORENCIA [Suspect]
     Dosage: LAST INF:26JAN2012
  2. METFORMIN [Concomitant]
  3. FOLIC ACID [Concomitant]
  4. PREDNISONE [Concomitant]

REACTIONS (3)
  - Lower respiratory tract infection [Unknown]
  - Dyspnoea [Unknown]
  - Pain [Recovering/Resolving]
